FAERS Safety Report 15257900 (Version 1)
Quarter: 2018Q3

REPORT INFORMATION
  Report Type: Spontaneous
  Country: GR (occurrence: GR)
  Receive Date: 20180808
  Receipt Date: 20180808
  Transmission Date: 20181010
  Serious: Yes (Other)
  Sender: FDA-Public Use
  Company Number: GR-BAXTER-2018BAX020887

PATIENT
  Age: 67 Year
  Sex: Female

DRUGS (2)
  1. GLYCERYL TRINITRATE [Suspect]
     Active Substance: NITROGLYCERIN
     Indication: HYPERTENSIVE CRISIS
     Dosage: 0,2 MG/MIN FOR MORE THAN 30 MINUTES
     Route: 042
  2. BREVIBLOC [Suspect]
     Active Substance: ESMOLOL HYDROCHLORIDE
     Indication: HYPERTENSIVE CRISIS
     Route: 042

REACTIONS (1)
  - Drug ineffective [Unknown]
